FAERS Safety Report 21359767 (Version 1)
Quarter: 2022Q3

REPORT INFORMATION
  Report Type: Spontaneous
  Country: GB (occurrence: GB)
  Receive Date: 20220921
  Receipt Date: 20220921
  Transmission Date: 20221026
  Serious: Yes (Other)
  Sender: FDA-Public Use
  Company Number: None

PATIENT
  Age: 56 Year
  Sex: Female
  Weight: 61 kg

DRUGS (4)
  1. BETAMETHASONE DIPROPIONATE [Suspect]
     Active Substance: BETAMETHASONE DIPROPIONATE
     Indication: Adverse drug reaction
     Dosage: UNK (ADDITIONAL INFO: ROUTE) (FORMULATION REPORTED AS SUSPENSION)
     Dates: end: 20220628
  2. BETAMETHASONE VALERATE\FUSIDIC ACID [Suspect]
     Active Substance: BETAMETHASONE VALERATE\FUSIDIC ACID
     Indication: Hand dermatitis
     Dosage: UNK (ADDITIONAL INFO: ROUTE) (FORMULATION REPORTED AS NOT APPLICABLE)
     Dates: end: 20220628
  3. HYDROCORTISONE [Suspect]
     Active Substance: HYDROCORTISONE
     Indication: Adverse drug reaction
     Dosage: UNK (ADDITIONAL INFO: ROUTE)
     Dates: end: 20220628
  4. CETIRIZINE [Concomitant]
     Active Substance: CETIRIZINE HYDROCHLORIDE
     Indication: Pruritus
     Dosage: UNK (ADDITIONAL INFO: ROUTE)

REACTIONS (2)
  - Medication error [Unknown]
  - Topical steroid withdrawal reaction [Not Recovered/Not Resolved]

NARRATIVE: CASE EVENT DATE: 20220702
